FAERS Safety Report 11843861 (Version 1)
Quarter: 2015Q4

REPORT INFORMATION
  Report Type: Spontaneous
  Country: US (occurrence: None)
  Receive Date: 20151216
  Receipt Date: 20151216
  Transmission Date: 20160305
  Serious: Yes (Other)
  Sender: FDA-Public Use
  Company Number: None

PATIENT
  Age: 24 Year
  Sex: Female

DRUGS (1)
  1. HUMIRA [Suspect]
     Active Substance: ADALIMUMAB
     Indication: CROHN^S DISEASE
     Dosage: Q2W
     Route: 058
     Dates: start: 20151113

REACTIONS (3)
  - Urticaria [None]
  - Sinusitis [None]
  - Injection site urticaria [None]

NARRATIVE: CASE EVENT DATE: 20151214
